FAERS Safety Report 6061990-7 (Version None)
Quarter: 2009Q1

REPORT INFORMATION
  Report Type: 
  Country: None (occurrence: None)
  Receive Date: 20090202
  Receipt Date: 20090130
  Transmission Date: 20090719
  Serious: Yes (Death)
  Sender: FDA-Public Use
  Company Number: US-B.I. PHARMACEUTICALS,INC./RIDGEFIELD-2009-BP-01153BP

PATIENT
  Age: 64 Year
  Sex: Female

DRUGS (1)
  1. MICARDIS [Suspect]
     Dates: end: 20080901

REACTIONS (1)
  - LUNG NEOPLASM MALIGNANT [None]
